FAERS Safety Report 23038925 (Version 2)
Quarter: 2023Q4

REPORT INFORMATION
  Report Type: Report from Study
  Country: US (occurrence: US)
  Receive Date: 20231006
  Receipt Date: 20231016
  Transmission Date: 20240110
  Serious: Yes (Other)
  Sender: FDA-Public Use
  Company Number: US-BAYER-2023A136518

PATIENT
  Age: 31 Year
  Sex: Female

DRUGS (2)
  1. ADEMPAS [Suspect]
     Active Substance: RIOCIGUAT
     Indication: Pulmonary arterial hypertension
     Dosage: 0.5 MG, TID
     Route: 048
     Dates: start: 202309
  2. OPSUMIT [Concomitant]
     Active Substance: MACITENTAN

REACTIONS (14)
  - Head discomfort [None]
  - Dyspepsia [Not Recovered/Not Resolved]
  - Nausea [Not Recovered/Not Resolved]
  - Abdominal distension [None]
  - Peripheral swelling [None]
  - Genital swelling [Not Recovered/Not Resolved]
  - Decreased appetite [None]
  - Diarrhoea [None]
  - Cough [Not Recovered/Not Resolved]
  - Nasopharyngitis [None]
  - Influenza [None]
  - Sputum discoloured [None]
  - Nasal congestion [Not Recovered/Not Resolved]
  - Chest pain [None]

NARRATIVE: CASE EVENT DATE: 20230923
